FAERS Safety Report 5312519-X (Version None)
Quarter: 2007Q2

REPORT INFORMATION
  Report Type: 
  Country: None (occurrence: None)
  Receive Date: 20070430
  Receipt Date: 20061227
  Transmission Date: 20071010
  Serious: Yes (Other)
  Sender: FDA-Public Use
  Company Number: 2006UW28610

PATIENT
  Age: 89 Year
  Sex: Female
  Weight: 56.7 kg

DRUGS (8)
  1. NEXIUM [Suspect]
     Indication: SCLERODERMA
     Route: 048
  2. NEXIUM [Suspect]
     Indication: OESOPHAGEAL DISORDER
     Route: 048
  3. PRILOSEC [Suspect]
     Route: 048
  4. NIFEDIPINE [Concomitant]
  5. HYDROCHLOROTHIAZIDE [Concomitant]
  6. GLUCOSAMINE/CHONDROITIN [Concomitant]
  7. CALCIUM CHLORIDE [Concomitant]
  8. OXYCODONE HCL [Concomitant]

REACTIONS (1)
  - OSTEOPOROSIS [None]
